FAERS Safety Report 19093512 (Version 1)
Quarter: 2021Q2

REPORT INFORMATION
  Report Type: Report from Study
  Country: BR (occurrence: BR)
  Receive Date: 20210405
  Receipt Date: 20210405
  Transmission Date: 20210717
  Serious: Yes (Hospitalization, Other)
  Sender: FDA-Public Use
  Company Number: NVSC2021BR072951

PATIENT
  Age: 41 Year
  Sex: Female

DRUGS (2)
  1. GILENYA [Suspect]
     Active Substance: FINGOLIMOD HYDROCHLORIDE
     Dosage: UNK
     Route: 065
     Dates: start: 202102
  2. GILENYA [Suspect]
     Active Substance: FINGOLIMOD HYDROCHLORIDE
     Indication: MULTIPLE SCLEROSIS
     Dosage: UNK
     Route: 065
     Dates: start: 2016

REACTIONS (8)
  - Asthenia [Unknown]
  - Fall [Unknown]
  - Visual impairment [Unknown]
  - Gait disturbance [Unknown]
  - Gait inability [Unknown]
  - Movement disorder [Unknown]
  - Seizure [Unknown]
  - Syncope [Unknown]

NARRATIVE: CASE EVENT DATE: 20210223
